FAERS Safety Report 7161373-2 (Version None)
Quarter: 2010Q4

REPORT INFORMATION
  Report Type: 
  Country: None (occurrence: None)
  Receive Date: 20101215
  Receipt Date: 20101202
  Transmission Date: 20110411
  Serious: Yes (Other)
  Sender: FDA-Public Use
  Company Number: RU-RANBAXY-2010R3-39927

PATIENT

DRUGS (6)
  1. OMEPRAZOLE+CLARITHROMYCIN+TINIDAZOLE [Suspect]
     Indication: GASTRIC ULCER
     Dosage: UNK
     Route: 048
     Dates: start: 20101125, end: 20101129
  2. OMEPRAZOLE+CLARITHROMYCIN+TINIDAZOLE [Suspect]
     Indication: GASTRITIS EROSIVE
  3. OMEZ [Concomitant]
     Indication: GASTRIC ULCER
     Dosage: 1 CAPSULE PER DAY
     Route: 065
     Dates: start: 20101130
  4. OMEZ [Concomitant]
     Indication: GASTRITIS EROSIVE
  5. PANCREATIN [Concomitant]
     Indication: PANCREATITIS CHRONIC
     Dosage: 2 TAB 3 TIMES PER DAY
     Route: 065
     Dates: start: 20101130
  6. UROLESAN [Concomitant]
     Indication: CHOLECYSTITIS CHRONIC
     Dosage: 15-20 DROPS 3 TIMES PER DAY
     Route: 065
     Dates: start: 20101130

REACTIONS (4)
  - ABDOMINAL PAIN [None]
  - CHEST PAIN [None]
  - COUGH [None]
  - OROPHARYNGEAL PAIN [None]
